FAERS Safety Report 5177559-2 (Version None)
Quarter: 2006Q4

REPORT INFORMATION
  Report Type: 
  Country: None (occurrence: None)
  Receive Date: 20061218
  Receipt Date: 20061208
  Transmission Date: 20070319
  Serious: Yes (Other)
  Sender: FDA-Public Use
  Company Number: BR-BOEHRINGER INGELHEIM PHARMACEUTICALS, INC.-2006-BP-14298BR

PATIENT
  Age: 64 Year
  Sex: Female

DRUGS (12)
  1. BEROTEC [Suspect]
     Indication: ILL-DEFINED DISORDER
     Route: 055
     Dates: start: 20061128, end: 20061205
  2. BEROTEC [Suspect]
     Indication: DYSPNOEA
  3. BEROTEC [Suspect]
     Indication: BRONCHITIS
  4. ATROVENT [Suspect]
     Indication: ILL-DEFINED DISORDER
     Route: 055
     Dates: start: 20061128, end: 20061205
  5. ATROVENT [Suspect]
     Indication: DYSPNOEA
  6. ATROVENT [Suspect]
     Indication: BRONCHITIS
  7. SORO (SALINE SOLUTION) [Concomitant]
     Indication: ILL-DEFINED DISORDER
     Route: 055
     Dates: start: 20061128, end: 20061205
  8. SORO (SALINE SOLUTION) [Concomitant]
     Indication: DYSPNOEA
  9. SORO (SALINE SOLUTION) [Concomitant]
     Indication: BRONCHITIS
  10. CEBRONFILINA (ACEBROFYLLINE) [Concomitant]
     Indication: DYSPNOEA
  11. ATENOLOL [Concomitant]
     Indication: HYPERTENSION
  12. ENALAPRIL MALEATE [Concomitant]
     Indication: HYPERTENSION

REACTIONS (3)
  - BLOOD PRESSURE INCREASED [None]
  - INCORRECT DOSE ADMINISTERED [None]
  - TREATMENT NONCOMPLIANCE [None]
